FAERS Safety Report 16703271 (Version 1)
Quarter: 2019Q3

REPORT INFORMATION
  Report Type: Spontaneous
  Country: US (occurrence: US)
  Receive Date: 20190628
  Receipt Date: 20190628
  Transmission Date: 20191004
  Serious: No
  Sender: FDA-Public Use
  Company Number: None

PATIENT
  Age: 55 Year
  Sex: Male

DRUGS (1)
  1. DALFAMPRIDINE 10MG ER TAB [Suspect]
     Active Substance: DALFAMPRIDINE
     Dates: start: 20190613, end: 20190627

REACTIONS (8)
  - Feeling cold [None]
  - Asthenia [None]
  - Peroneal nerve palsy [None]
  - Vision blurred [None]
  - Myocardial infarction [None]
  - Nausea [None]
  - Neck pain [None]
  - Palpitations [None]

NARRATIVE: CASE EVENT DATE: 20190627
